FAERS Safety Report 24649020 (Version 2)
Quarter: 2025Q2

REPORT INFORMATION
  Report Type: Spontaneous
  Country: US (occurrence: US)
  Receive Date: 20241121
  Receipt Date: 20250417
  Transmission Date: 20250716
  Serious: No
  Sender: SANOFI AVENTIS
  Company Number: US-SA-2024SA339498

PATIENT
  Age: 53 Year
  Sex: Female
  Weight: 129.09 kg

DRUGS (5)
  1. KEVZARA [Suspect]
     Active Substance: SARILUMAB
     Indication: Rheumatoid arthritis
     Dosage: 150 MG QOW
     Route: 058
     Dates: start: 20241018
  2. GABAPENTIN [Concomitant]
     Active Substance: GABAPENTIN
  3. FAMOTIDINE [Concomitant]
     Active Substance: FAMOTIDINE
  4. ACETAMINOPHEN [Concomitant]
     Active Substance: ACETAMINOPHEN
  5. MYRBETRIQ [Concomitant]
     Active Substance: MIRABEGRON

REACTIONS (3)
  - Pain [Recovering/Resolving]
  - Hypersensitivity [Unknown]
  - Therapeutic product effect incomplete [Unknown]

NARRATIVE: CASE EVENT DATE: 20240101
